FAERS Safety Report 23374854 (Version 1)
Quarter: 2024Q1

REPORT INFORMATION
  Report Type: Spontaneous
  Country: US (occurrence: US)
  Receive Date: 20240106
  Receipt Date: 20240106
  Transmission Date: 20240409
  Serious: No
  Sender: FDA-Public Use
  Company Number: US-TEVA-2023-US-2944925

PATIENT
  Age: 35 Year

DRUGS (1)
  1. UZEDY [Suspect]
     Active Substance: RISPERIDONE
     Indication: Major depression
     Dosage: DOSAGE TEXT: FORM STRENGTH: 50/0.14 MG/ML
     Route: 058
     Dates: start: 20231020

REACTIONS (2)
  - Off label use [Unknown]
  - Product use in unapproved indication [Unknown]
